FAERS Safety Report 25596415 (Version 1)
Quarter: 2025Q3

REPORT INFORMATION
  Report Type: Spontaneous
  Country: CN (occurrence: CN)
  Receive Date: 20250723
  Receipt Date: 20250723
  Transmission Date: 20251020
  Serious: Yes (Other)
  Sender: NOVARTIS
  Company Number: CN-002147023-NVSC2025CN114305

PATIENT
  Age: 50 Year
  Sex: Male

DRUGS (4)
  1. CYCLOSPORINE [Suspect]
     Active Substance: CYCLOSPORINE
     Indication: Aplastic anaemia
     Dosage: 100.000 MG, QD
     Route: 048
     Dates: start: 20250606, end: 20250606
  2. STANOZOLOL [Suspect]
     Active Substance: STANOZOLOL
     Indication: Aplastic anaemia
     Dosage: 2.000 MG, TID
     Route: 048
     Dates: start: 20250609, end: 20250702
  3. ROXADUSTAT [Concomitant]
     Active Substance: ROXADUSTAT
     Indication: Aplastic anaemia
     Dosage: 100.000 MG, QD
     Route: 048
     Dates: start: 20250606, end: 20250606
  4. AVATROMBOPAG [Concomitant]
     Active Substance: AVATROMBOPAG
     Indication: Aplastic anaemia
     Dosage: 40.000 MG, QD
     Route: 048
     Dates: start: 20250609, end: 20250702

REACTIONS (1)
  - Hepatic function abnormal [Unknown]

NARRATIVE: CASE EVENT DATE: 20250702
